FAERS Safety Report 24243019 (Version 2)
Quarter: 2024Q4

REPORT INFORMATION
  Report Type: Spontaneous
  Country: US (occurrence: US)
  Receive Date: 20240823
  Receipt Date: 20241011
  Transmission Date: 20250114
  Serious: No
  Sender: GRANULES INDIA
  Company Number: US-GRANULES-US-2024GRASPO00366

PATIENT

DRUGS (1)
  1. DEXTROAMPHETAMINE SACCHARATE, AMPHETAMINE ASPARTATE, DEXTROAMPHETAMINE [Suspect]
     Active Substance: DEXTROAMPHETAMINE SACCHARATE, AMPHETAMINE ASPARTATE, DEXTROAMPHETAMINE SULFATE AND AMPHETAMINE SULFA
     Indication: Attention deficit hyperactivity disorder
     Route: 048

REACTIONS (2)
  - Drug screen positive [Unknown]
  - Suspected product contamination [Unknown]
